FAERS Safety Report 4680243-2 (Version None)
Quarter: 2005Q2

REPORT INFORMATION
  Report Type: 
  Country: None (occurrence: None)
  Receive Date: 20050601
  Receipt Date: 20050518
  Transmission Date: 20051028
  Serious: Yes (Hospitalization, Other)
  Sender: FDA-Public Use
  Company Number: PERIO-2005-0025

PATIENT
  Age: 56 Year
  Sex: Female

DRUGS (2)
  1. PERIOSTAT (DOXYCYCLINE HYCLATE)(TABLETS) [Suspect]
     Indication: PERIODONTITIS
     Dosage: 20 MG, BID, PER ORAL
     Route: 048
     Dates: start: 20050207, end: 20050216
  2. CALCIUM SUPPLEMENT [Concomitant]

REACTIONS (3)
  - DYSPHAGIA [None]
  - HYPERSENSITIVITY [None]
  - MYOCARDIAL INFARCTION [None]
